FAERS Safety Report 8990416 (Version 1)
Quarter: 2012Q4

REPORT INFORMATION
  Report Type: 
  Country: US (occurrence: US)
  Receive Date: 20121228
  Receipt Date: 20121228
  Transmission Date: 20130627
  Serious: Yes (Other)
  Sender: FDA-Public Use
  Company Number: US-BAYER-2012-134444

PATIENT
  Age: 30 Year
  Sex: Female

DRUGS (1)
  1. MIRENA [Suspect]
     Dosage: 20 mcg/24hr, CONT
     Route: 015
     Dates: start: 20091201, end: 20120131

REACTIONS (8)
  - Uterine perforation [None]
  - Gastrointestinal pain [None]
  - Medical device discomfort [None]
  - Uterine spasm [None]
  - Uterine pain [None]
  - Medical device pain [None]
  - Injury [None]
  - Infection [None]
